FAERS Safety Report 14677603 (Version 1)
Quarter: 2018Q1

REPORT INFORMATION
  Report Type: Spontaneous
  Country: US (occurrence: US)
  Receive Date: 20180324
  Receipt Date: 20180324
  Transmission Date: 20180509
  Serious: No
  Sender: FDA-Public Use
  Company Number: None

PATIENT
  Age: 54 Year
  Sex: Female

DRUGS (7)
  1. FLONASE [Concomitant]
     Active Substance: FLUTICASONE PROPIONATE
  2. CREON [Concomitant]
     Active Substance: PANCRELIPASE AMYLASE\PANCRELIPASE LIPASE\PANCRELIPASE PROTEASE
  3. NORVASC [Concomitant]
     Active Substance: AMLODIPINE BESYLATE
  4. MULTIVITAMIN [Concomitant]
     Active Substance: VITAMINS
  5. OMPERAZOLE [Concomitant]
     Active Substance: OMEPRAZOLE
  6. CABOMETYX [Suspect]
     Active Substance: CABOZANTINIB S-MALATE
     Indication: OBESITY
     Route: 048
     Dates: start: 20180118
  7. ZYRTEC [Concomitant]
     Active Substance: CETIRIZINE HYDROCHLORIDE

REACTIONS (5)
  - Pruritus [None]
  - Oropharyngeal pain [None]
  - Dry skin [None]
  - Rash [None]
  - Muscle spasms [None]
